FAERS Safety Report 8037414-7 (Version None)
Quarter: 2012Q1

REPORT INFORMATION
  Report Type: 
  Country: None (occurrence: None)
  Receive Date: 20120111
  Receipt Date: 20120102
  Transmission Date: 20120608
  Serious: Yes (Death)
  Sender: FDA-Public Use
  Company Number: US-BAYER-2012-000988

PATIENT
  Age: 14 Year
  Sex: Male

DRUGS (10)
  1. QUETIAPINE [Suspect]
     Route: 048
  2. DIPHENHYDRAMINE HCL [Suspect]
     Route: 048
  3. SERTRALINE HYDROCHLORIDE [Suspect]
     Route: 048
  4. PENICILLIN [Suspect]
     Route: 048
  5. CODEIN + ETHYLMORPHINE HYDROCHLORIDE [Suspect]
     Route: 048
  6. VALPROIC ACID [Suspect]
     Route: 048
  7. ARIPIPRAZOLE [Suspect]
  8. CENTRALLY ACTING SYMPATHOMIMETICS [Suspect]
     Route: 048
  9. MELOXICAM [Suspect]
     Route: 048
  10. CLONIDINE [Suspect]
     Route: 048

REACTIONS (3)
  - CARDIAC ARREST [None]
  - TOXICITY TO VARIOUS AGENTS [None]
  - RESPIRATORY ARREST [None]
